FAERS Safety Report 9711554 (Version 2)
Quarter: 2014Q2

REPORT INFORMATION
  Report Type: Spontaneous
  Country: US (occurrence: US)
  Receive Date: 20131126
  Receipt Date: 20140510
  Transmission Date: 20141212
  Serious: No
  Sender: FDA-Public Use
  Company Number: US-BRISTOL-MYERS SQUIBB COMPANY-19079102

PATIENT
  Age: 67 Year
  Sex: Female
  Weight: 77.1 kg

DRUGS (4)
  1. BYDUREON  2MG SUSPENSION [Suspect]
     Indication: TYPE 2 DIABETES MELLITUS
     Dosage: THERAPY ON 2JUL13,5JUL13, 22AUG13
     Route: 058
     Dates: start: 20130604
  2. METFORMIN HCL [Suspect]
  3. ZOCOR [Concomitant]
  4. ATENOLOL [Concomitant]

REACTIONS (7)
  - Injection site erythema [Unknown]
  - Injection site pruritus [Not Recovered/Not Resolved]
  - Drug ineffective [Unknown]
  - Injection site pain [Unknown]
  - Injection site nodule [Unknown]
  - Diarrhoea [Recovering/Resolving]
  - Pruritus [Unknown]
